FAERS Safety Report 19971696 (Version 1)
Quarter: 2021Q4

REPORT INFORMATION
  Report Type: Spontaneous
  Country: GB (occurrence: GB)
  Receive Date: 20211019
  Receipt Date: 20211019
  Transmission Date: 20220303
  Serious: Yes (Hospitalization, Other)
  Sender: FDA-Public Use
  Company Number: GB-ABBVIE-21K-167-4119662-00

PATIENT
  Age: 59 Year
  Sex: Male

DRUGS (9)
  1. DEPAKOTE [Interacting]
     Active Substance: DIVALPROEX SODIUM
     Indication: Product used for unknown indication
     Route: 065
     Dates: start: 201211
  2. DEPAKOTE [Interacting]
     Active Substance: DIVALPROEX SODIUM
     Route: 065
     Dates: start: 201211
  3. DEPAKOTE [Interacting]
     Active Substance: DIVALPROEX SODIUM
     Route: 065
  4. DONEPEZIL HYDROCHLORIDE [Suspect]
     Active Substance: DONEPEZIL HYDROCHLORIDE
     Indication: Product used for unknown indication
     Route: 065
  5. LAMOTRIGINE [Suspect]
     Active Substance: LAMOTRIGINE
     Indication: Product used for unknown indication
     Route: 065
     Dates: start: 2017, end: 201808
  6. ASENAPINE [Interacting]
     Active Substance: ASENAPINE
     Indication: Product used for unknown indication
     Route: 065
     Dates: start: 2013
  7. HALDOL [Suspect]
     Active Substance: HALOPERIDOL
     Indication: Product used for unknown indication
     Route: 065
  8. ASPIRIN [Concomitant]
     Active Substance: ASPIRIN
     Indication: Product used for unknown indication
     Dates: start: 2013
  9. PHENOTHIAZINE [Concomitant]
     Active Substance: PHENOTHIAZINE
     Indication: Product used for unknown indication

REACTIONS (20)
  - Vascular dementia [Unknown]
  - Dementia Alzheimer^s type [Unknown]
  - Cerebral atrophy [Unknown]
  - Cellulitis [Recovered/Resolved]
  - Thermal burns of eye [Recovering/Resolving]
  - Deafness [Unknown]
  - Weight decreased [Unknown]
  - Decreased appetite [Unknown]
  - Oedema [Unknown]
  - Blood pressure decreased [Unknown]
  - Swelling face [Unknown]
  - Drug resistance [Unknown]
  - Disease recurrence [Unknown]
  - Eyelid oedema [Recovering/Resolving]
  - Tinnitus [Unknown]
  - Depressed mood [Unknown]
  - Sedation [Unknown]
  - Conjunctivitis [Unknown]
  - Drug interaction [Unknown]
  - Labelled drug-drug interaction issue [Unknown]

NARRATIVE: CASE EVENT DATE: 20130101
